FAERS Safety Report 11415186 (Version 1)
Quarter: 2015Q3

REPORT INFORMATION
  Report Type: Spontaneous
  Country: US (occurrence: None)
  Receive Date: 20150824
  Receipt Date: 20150824
  Transmission Date: 20151125
  Serious: Yes (Life-Threatening, Hospitalization)
  Sender: FDA-Public Use
  Company Number: None

PATIENT
  Age: 59 Year
  Sex: Male
  Weight: 106.8 kg

DRUGS (1)
  1. SPIRONOLACTONE. [Suspect]
     Active Substance: SPIRONOLACTONE
     Indication: HYPERTENSION
     Route: 048
     Dates: end: 201506

REACTIONS (5)
  - Bradycardia [None]
  - Hyperkalaemia [None]
  - Palpitations [None]
  - Unresponsive to stimuli [None]
  - Haemodialysis [None]

NARRATIVE: CASE EVENT DATE: 20110621
